FAERS Safety Report 12538188 (Version 11)
Quarter: 2018Q1

REPORT INFORMATION
  Report Type: Spontaneous
  Country: US (occurrence: US)
  Receive Date: 20160707
  Receipt Date: 20180208
  Transmission Date: 20180508
  Serious: Yes (Death, Hospitalization, Other)
  Sender: FDA-Public Use
  Company Number: US-ACTELION-A-US2016-138731

PATIENT
  Age: 83 Year
  Sex: Female
  Weight: 72.56 kg

DRUGS (14)
  1. OPSUMIT [Suspect]
     Active Substance: MACITENTAN
     Indication: PULMONARY ARTERIAL HYPERTENSION
     Dosage: 10 MG, QD
     Route: 048
     Dates: start: 20140310, end: 20171225
  2. SILDENAFIL. [Concomitant]
     Active Substance: SILDENAFIL
     Dosage: 40 MG, TID
     Route: 048
  3. ALLEGRA [Concomitant]
     Active Substance: FEXOFENADINE HYDROCHLORIDE
     Dosage: 180 MG, PRN
  4. OXYGEN. [Concomitant]
     Active Substance: OXYGEN
     Dosage: 5-6 LITRES
  5. LASIX [Concomitant]
     Active Substance: FUROSEMIDE
     Dosage: 40 MG, BID
     Route: 048
  6. GABAPENTIN. [Concomitant]
     Active Substance: GABAPENTIN
     Dosage: 300 MG, UNK
  7. K-DUR [Concomitant]
     Active Substance: POTASSIUM CHLORIDE
     Dosage: 20 MEQ, QD
     Route: 048
  8. UPTRAVI [Suspect]
     Active Substance: SELEXIPAG
     Indication: PULMONARY ARTERIAL HYPERTENSION
     Route: 048
  9. KLOR-CON [Concomitant]
     Active Substance: POTASSIUM CHLORIDE
     Dosage: 16 MEQ, AM AND 24 MEQ PM
     Route: 048
  10. LIPITOR [Concomitant]
     Active Substance: ATORVASTATIN CALCIUM
     Dosage: 20 MG, UNK
  11. PLAVIX [Concomitant]
     Active Substance: CLOPIDOGREL BISULFATE
     Dosage: 75 MG, QD WITH OR WITHOUT FOOD
  12. LASIX [Concomitant]
     Active Substance: FUROSEMIDE
     Dosage: 40 MG, BID X ONE WEEK, THEN 40 MG QD
     Route: 048
  13. LACTULOSE. [Concomitant]
     Active Substance: LACTULOSE
     Dosage: 10G/15ML, QD TO BID PRN CONSTIPATION
  14. REMODULIN [Concomitant]
     Active Substance: TREPROSTINIL
     Route: 058

REACTIONS (24)
  - Wheelchair user [Unknown]
  - Right ventricular dysfunction [Unknown]
  - Somnolence [Unknown]
  - Fatigue [Unknown]
  - Dysuria [Unknown]
  - Oedema peripheral [Unknown]
  - Infusion site pain [Unknown]
  - Disease complication [Fatal]
  - Ascites [Unknown]
  - Liver disorder [Unknown]
  - Renal disorder [Unknown]
  - Pulmonary arterial hypertension [Fatal]
  - Disease progression [Fatal]
  - Pleural effusion [Unknown]
  - Fluid retention [Unknown]
  - Pericardial effusion [Unknown]
  - Dizziness [Unknown]
  - Renal pain [Unknown]
  - Urine output decreased [Unknown]
  - Condition aggravated [Unknown]
  - Dyspnoea [Unknown]
  - Concomitant disease progression [Unknown]
  - Peripheral swelling [Recovering/Resolving]
  - Device related infection [Unknown]
